FAERS Safety Report 10162514 (Version 2)
Quarter: 2014Q2

REPORT INFORMATION
  Report Type: Spontaneous
  Country: US (occurrence: US)
  Receive Date: 20140509
  Receipt Date: 20140613
  Transmission Date: 20141212
  Serious: No
  Sender: FDA-Public Use
  Company Number: US-PFIZER INC-2014126024

PATIENT
  Age: 81 Year
  Sex: Female
  Weight: 77.1 kg

DRUGS (1)
  1. CELEBREX [Suspect]
     Indication: ARTHRITIS
     Dosage: 200 MG, 1X/DAY
     Route: 048
     Dates: start: 2013, end: 201404

REACTIONS (2)
  - Arthritis [Unknown]
  - Pain [Unknown]
